FAERS Safety Report 6416983-4 (Version None)
Quarter: 2009Q4

REPORT INFORMATION
  Report Type: 
  Country: None (occurrence: None)
  Receive Date: 20091027
  Receipt Date: 20090720
  Transmission Date: 20100525
  Serious: No
  Sender: FDA-Public Use
  Company Number: US-ALLERGAN-0909783US

PATIENT
  Age: 80 Year
  Sex: Male

DRUGS (7)
  1. ALPHAGAN P [Suspect]
     Indication: OPEN ANGLE GLAUCOMA
     Dosage: 1 GTT, TID
     Route: 047
     Dates: start: 20090201
  2. AZOPT [Suspect]
     Indication: OPEN ANGLE GLAUCOMA
     Dosage: 1 GTT, BID
     Route: 047
     Dates: start: 20090201
  3. LUMIGAN [Concomitant]
     Indication: OPEN ANGLE GLAUCOMA
     Dosage: 1 GTT, QHS
     Route: 047
  4. PREDNISONE TAB [Concomitant]
     Dosage: 10 MG, QD
     Route: 048
  5. ASPIRIN [Concomitant]
     Indication: ANTICOAGULANT THERAPY
     Dosage: ONE, QD
     Route: 048
  6. FLOMAX [Concomitant]
     Dosage: ONE, QD
     Route: 048
  7. DIGOXIN [Concomitant]
     Dosage: 0.125 MG, QD
     Route: 048

REACTIONS (1)
  - BLOOD GLUCOSE INCREASED [None]
